FAERS Safety Report 12474815 (Version 1)
Quarter: 2016Q2

REPORT INFORMATION
  Report Type: Spontaneous
  Country: US (occurrence: None)
  Receive Date: 20160616
  Receipt Date: 20160616
  Transmission Date: 20160815
  Serious: No
  Sender: FDA-Public Use
  Company Number: None

PATIENT
  Age: 81 Year
  Sex: Female

DRUGS (1)
  1. SUTENT [Suspect]
     Active Substance: SUNITINIB MALATE
     Indication: GASTRIC CANCER
     Dosage: 1 CAP 14DAYS ON 7 DAYS OFF
     Route: 048
     Dates: start: 20160119

REACTIONS (2)
  - Oral pain [None]
  - Fatigue [None]

NARRATIVE: CASE EVENT DATE: 201605
